FAERS Safety Report 9681383 (Version 1)
Quarter: 2013Q4

REPORT INFORMATION
  Report Type: Spontaneous
  Country: US (occurrence: US)
  Receive Date: 20131111
  Receipt Date: 20131111
  Transmission Date: 20140711
  Serious: No
  Sender: FDA-Public Use
  Company Number: US-PFIZER INC-2013316008

PATIENT
  Age: 69 Year
  Sex: Male

DRUGS (2)
  1. INLYTA [Suspect]
     Indication: RENAL CANCER
     Dosage: 5 MG, BID
     Dates: start: 20130429
  2. INLYTA [Suspect]
     Dosage: 5 MG, QD

REACTIONS (3)
  - Asthenia [Recovering/Resolving]
  - Diarrhoea [Recovering/Resolving]
  - Dyspnoea [Recovering/Resolving]
